FAERS Safety Report 15480694 (Version 3)
Quarter: 2018Q4

REPORT INFORMATION
  Report Type: Spontaneous
  Country: FR (occurrence: FR)
  Receive Date: 20181010
  Receipt Date: 20181129
  Transmission Date: 20190205
  Serious: Yes (Other)
  Sender: FDA-Public Use
  Company Number: PHHY2018FR114942

PATIENT
  Age: 63 Year
  Sex: Female

DRUGS (8)
  1. GRANULOCYTE COLONY STIMULATING FACTOR [Suspect]
     Active Substance: GRANULOCYTE COLONY-STIMULATING FACTOR NOS
     Indication: PALLIATIVE CARE
     Dosage: UNK
     Route: 065
     Dates: start: 201406, end: 201502
  2. GEMCITABINE [Concomitant]
     Active Substance: GEMCITABINE\GEMCITABINE HYDROCHLORIDE
     Indication: OVARIAN CANCER RECURRENT
     Dosage: 1 DF, UNK (1UG\L)
     Route: 065
  3. PACLITAXEL. [Suspect]
     Active Substance: PACLITAXEL
     Indication: OVARIAN CANCER RECURRENT
     Dosage: 175 MG/M2, UNK
     Route: 065
  4. CARBOPLATIN. [Suspect]
     Active Substance: CARBOPLATIN
     Dosage: 1 DF, UNK (1UG\L)
     Route: 065
  5. DOXORUBICIN [Concomitant]
     Active Substance: DOXORUBICIN
     Indication: PALLIATIVE CARE
     Dosage: UNK
     Route: 065
     Dates: start: 201405
  6. BEVACIZUMAB. [Suspect]
     Active Substance: BEVACIZUMAB
     Indication: OVARIAN CANCER RECURRENT
     Dosage: UNK
     Route: 065
  7. TRABECTEDIN [Concomitant]
     Active Substance: TRABECTEDIN
     Indication: PALLIATIVE CARE
     Dosage: UNK
     Route: 065
     Dates: start: 201405
  8. CARBOPLATIN. [Suspect]
     Active Substance: CARBOPLATIN
     Indication: OVARIAN CANCER RECURRENT
     Dosage: TARGET AREA UNDER THE CURVE [AUC]-6
     Route: 065

REACTIONS (8)
  - Lung infection [Unknown]
  - Neuropathy peripheral [Unknown]
  - Neutropenia [Unknown]
  - Asthenia [Unknown]
  - Nausea [Unknown]
  - Alopecia [Unknown]
  - Pneumonia [Unknown]
  - Malignant neoplasm progression [Unknown]
